FAERS Safety Report 22037460 (Version 1)
Quarter: 2023Q1

REPORT INFORMATION
  Report Type: Spontaneous
  Country: US (occurrence: US)
  Receive Date: 20230226
  Receipt Date: 20230226
  Transmission Date: 20230417
  Serious: Yes (Other)
  Sender: FDA-Public Use
  Company Number: US-PTx-2023000035

PATIENT
  Sex: Female

DRUGS (1)
  1. LEUKINE [Suspect]
     Active Substance: SARGRAMOSTIM
     Indication: Product used for unknown indication
     Dosage: 5TH TREATMENT DEC 2022
     Route: 065
     Dates: start: 202212

REACTIONS (2)
  - Urinary retention [Unknown]
  - Gait inability [Unknown]

NARRATIVE: CASE EVENT DATE: 20221201
